FAERS Safety Report 7109730-4 (Version None)
Quarter: 2010Q4

REPORT INFORMATION
  Report Type: 
  Country: None (occurrence: None)
  Receive Date: 20101116
  Receipt Date: 20101116
  Transmission Date: 20110411
  Serious: Yes (Other)
  Sender: FDA-Public Use
  Company Number: None

PATIENT
  Sex: Female
  Weight: 77.1115 kg

DRUGS (2)
  1. MELOXICAM [Suspect]
     Indication: ABDOMINAL PAIN UPPER
     Dosage: TWICE A DAY ORALLY
     Route: 048
     Dates: start: 20100601, end: 20100607
  2. MELOXICAM [Suspect]
     Indication: PAIN
     Dosage: TWICE A DAY ORALLY
     Route: 048
     Dates: start: 20100601, end: 20100607

REACTIONS (2)
  - DRUG INEFFECTIVE [None]
  - PRODUCT FORMULATION ISSUE [None]
